FAERS Safety Report 19205666 (Version 1)
Quarter: 2021Q2

REPORT INFORMATION
  Report Type: Spontaneous
  Country: US (occurrence: US)
  Receive Date: 20210503
  Receipt Date: 20210503
  Transmission Date: 20210717
  Serious: No
  Sender: FDA-Public Use
  Company Number: US-FARMAPROD-202101-0131

PATIENT
  Age: 82 Year
  Sex: Female

DRUGS (20)
  1. OXERVATE [Suspect]
     Active Substance: CENEGERMIN-BKBJ
     Indication: ULCERATIVE KERATITIS
  2. MOXIFLOXACIN. [Concomitant]
     Active Substance: MOXIFLOXACIN
     Route: 047
  3. METOPROLOL. [Concomitant]
     Active Substance: METOPROLOL
     Dosage: EXTENDED RELEASE
  4. AMLODIPINE [Concomitant]
     Active Substance: AMLODIPINE BESYLATE
  5. VALACYCLOVIR [Concomitant]
     Active Substance: VALACYCLOVIR HYDROCHLORIDE
  6. ELIQUIS [Concomitant]
     Active Substance: APIXABAN
  7. SIMVASTATIN. [Concomitant]
     Active Substance: SIMVASTATIN
  8. VITAMIN D3 [Concomitant]
     Active Substance: CHOLECALCIFEROL
  9. KETOROLAC TROMETHAMINE. [Concomitant]
     Active Substance: KETOROLAC TROMETHAMINE
  10. ZIRGAN [Concomitant]
     Active Substance: GANCICLOVIR
     Route: 047
  11. GABAPENTIN. [Concomitant]
     Active Substance: GABAPENTIN
  12. POLYMYXIN [Concomitant]
     Active Substance: POLYMYXIN
     Route: 047
  13. SYNTHROID [Concomitant]
     Active Substance: LEVOTHYROXINE SODIUM
  14. METHOCARBAMOL. [Concomitant]
     Active Substance: METHOCARBAMOL
  15. DUREZOL [Concomitant]
     Active Substance: DIFLUPREDNATE
     Route: 047
  16. XANAX [Concomitant]
     Active Substance: ALPRAZOLAM
     Indication: ANXIETY
  17. MELATONIN [Concomitant]
     Active Substance: MELATONIN
     Dosage: AT BEDTIME
  18. VITAMINE B12 [Concomitant]
     Active Substance: CYANOCOBALAMIN
  19. OXERVATE [Suspect]
     Active Substance: CENEGERMIN-BKBJ
     Indication: KERATITIS
     Route: 047
     Dates: start: 20210118
  20. CALCIUM [Concomitant]
     Active Substance: CALCIUM

REACTIONS (4)
  - Eye irritation [Not Recovered/Not Resolved]
  - Ocular discomfort [Not Recovered/Not Resolved]
  - Lacrimation increased [Not Recovered/Not Resolved]
  - Eye pain [Not Recovered/Not Resolved]

NARRATIVE: CASE EVENT DATE: 20210120
